FAERS Safety Report 8615081-9 (Version None)
Quarter: 2012Q3

REPORT INFORMATION
  Report Type: 
  Country: None (occurrence: None)
  Receive Date: 20120823
  Receipt Date: 20120816
  Transmission Date: 20120928
  Serious: Yes (Other)
  Sender: FDA-Public Use
  Company Number: PHHY2012BR044525

PATIENT
  Sex: Female

DRUGS (7)
  1. STRESSTABS [Concomitant]
  2. VALIUM [Concomitant]
     Dosage: 10 MG, UNK
  3. VITAMIN D [Concomitant]
  4. SILIFT [Concomitant]
  5. GILENYA [Suspect]
     Dosage: 1 DF, QD
     Route: 048
     Dates: start: 20120517
  6. MESALAMINE [Concomitant]
  7. OSCAL 500-D [Concomitant]

REACTIONS (7)
  - LYMPHOCYTE COUNT DECREASED [None]
  - MALAISE [None]
  - COLITIS [None]
  - DIARRHOEA [None]
  - INFLUENZA [None]
  - ABDOMINAL PAIN [None]
  - ELECTROLYTE IMBALANCE [None]
